FAERS Safety Report 22537212 (Version 2)
Quarter: 2023Q2

REPORT INFORMATION
  Report Type: Report from Study
  Country: IN (occurrence: IN)
  Receive Date: 20230608
  Receipt Date: 20230613
  Transmission Date: 20230721
  Serious: Yes (Hospitalization)
  Sender: FDA-Public Use
  Company Number: IN-002147023-NVSC2023IN127568

PATIENT
  Age: 45 Year
  Sex: Female
  Weight: 68 kg

DRUGS (16)
  1. ZORTRESS [Suspect]
     Active Substance: EVEROLIMUS
     Indication: Immunosuppressant drug therapy
     Dosage: 0.25 MG, BID
     Route: 048
     Dates: start: 20230523
  2. AZORAN [Concomitant]
     Indication: Immunosuppressant drug therapy
     Dosage: 75 MG
     Route: 048
     Dates: start: 20230516
  3. TACROLIMUS [Concomitant]
     Active Substance: TACROLIMUS
     Indication: Immunosuppressant drug therapy
     Dosage: 0.5 MG
     Route: 048
     Dates: start: 20230516
  4. PREDNISOLONE [Concomitant]
     Active Substance: PREDNISOLONE
     Indication: Inflammation
     Dosage: 15 MG
     Route: 048
     Dates: start: 20230516
  5. PREDNISOLONE [Concomitant]
     Active Substance: PREDNISOLONE
     Indication: Autoimmune disorder
  6. ZINCOVIT [Concomitant]
     Indication: Hypovitaminosis
     Dosage: 10 ML, BID
     Route: 048
     Dates: start: 20230516
  7. PROBIOTICS NOS [Concomitant]
     Active Substance: PROBIOTICS NOS
     Indication: Irritable bowel syndrome
     Dosage: 1 DOSAGE FORM, QD
     Route: 048
     Dates: start: 20230516
  8. LASIX [Concomitant]
     Active Substance: FUROSEMIDE
     Indication: Polyuria
     Dosage: 40 MG
     Route: 048
     Dates: start: 20230516
  9. OBETICHOLIC ACID [Concomitant]
     Active Substance: OBETICHOLIC ACID
     Indication: Primary biliary cholangitis
     Dosage: 5 MG
     Route: 048
     Dates: start: 20230516
  10. CALCIUM CARBONATE\CHOLECALCIFEROL [Concomitant]
     Active Substance: CALCIUM CARBONATE\CHOLECALCIFEROL
     Indication: Vitamin D deficiency
     Dosage: 500 MG
     Route: 048
     Dates: start: 20230516
  11. CALCIUM CARBONATE\CHOLECALCIFEROL [Concomitant]
     Active Substance: CALCIUM CARBONATE\CHOLECALCIFEROL
     Indication: Calcium deficiency
  12. TORFLASH [Concomitant]
     Indication: Blood calcium decreased
     Dosage: UNK, QW (1 SACHET ONCE WEEKLY (EVERY FRIDAY))
     Route: 048
     Dates: start: 20230516
  13. FLUTICASONE PROPIONATE\SALMETEROL XINAFOATE [Concomitant]
     Active Substance: FLUTICASONE PROPIONATE\SALMETEROL XINAFOATE
     Indication: Asthma
     Dosage: 250 MCG (POWDER FOR INHAILATION) (ROTACAPS)
     Dates: start: 20230516
  14. NPH INSULIN [Concomitant]
     Active Substance: INSULIN BEEF
     Indication: Diabetes mellitus
     Dosage: 14 U
     Route: 058
     Dates: start: 20230516
  15. ACTRAPID [Concomitant]
     Active Substance: INSULIN HUMAN
     Indication: Diabetes mellitus
     Dosage: 20U-18U-16U
     Route: 058
     Dates: start: 20230516
  16. LANTUS [Concomitant]
     Active Substance: INSULIN GLARGINE
     Indication: Diabetes mellitus
     Dosage: 10U-0-0-20U
     Route: 058
     Dates: start: 20230516

REACTIONS (2)
  - Pleural effusion [Recovered/Resolved]
  - Dyspnoea [Recovering/Resolving]

NARRATIVE: CASE EVENT DATE: 20230526
